FAERS Safety Report 8861547 (Version 2)
Quarter: 2014Q1

REPORT INFORMATION
  Report Type: Spontaneous
  Country: US (occurrence: None)
  Receive Date: 20121022
  Receipt Date: 20140328
  Transmission Date: 20141002
  Serious: Yes (Other)
  Sender: FDA-Public Use
  Company Number: JPI-P-025413

PATIENT
  Age: 38 Year
  Sex: Female
  Weight: 64.1 kg

DRUGS (14)
  1. XYREM [Suspect]
     Indication: NARCOLEPSY
     Route: 048
     Dates: start: 20050420
  2. XYREM [Suspect]
     Indication: SOMNOLENCE
     Route: 048
     Dates: start: 20050420
  3. XYREM [Suspect]
     Indication: RAPID EYE MOVEMENTS SLEEP ABNORMAL
     Route: 048
     Dates: start: 20050420
  4. GEODON [Suspect]
     Indication: BIPOLAR DISORDER
     Dosage: UNKNOWN, SINGLE, ORAL
     Route: 048
     Dates: start: 2006, end: 201111
  5. ABILIFY [Suspect]
     Indication: BIPOLAR DISORDER
     Dosage: UNKNOWN, SINGLE, ORAL
     Route: 048
     Dates: start: 201111, end: 201207
  6. ZONISAMIDE [Suspect]
     Indication: BIPOLAR DISORDER
     Dosage: UNKNOWN, SINGLE, ORAL
     Route: 048
     Dates: start: 2006, end: 201209
  7. METHYLPHENIDATE HYDROCHLORIDE [Concomitant]
  8. LEVOTHYROXINE [Concomitant]
  9. MODAFINIL [Concomitant]
  10. LIOTHYRONINE [Concomitant]
  11. ASPIRIN [Concomitant]
  12. MAGNESIUM [Concomitant]
  13. IRON [Concomitant]
  14. GABAPENTIN [Concomitant]

REACTIONS (18)
  - Somnambulism [None]
  - Confusional state [None]
  - Restless legs syndrome [None]
  - Tardive dyskinesia [None]
  - Transient ischaemic attack [None]
  - Hypothyroidism [None]
  - Oral herpes [None]
  - Sleep apnoea syndrome [None]
  - Insomnia [None]
  - Night sweats [None]
  - Motor dysfunction [None]
  - VIIth nerve paralysis [None]
  - Oral herpes [None]
  - Somnambulism [None]
  - Condition aggravated [None]
  - Cerebrovascular accident [None]
  - VIIth nerve paralysis [None]
  - Oral candidiasis [None]
